FAERS Safety Report 6166024-1 (Version None)
Quarter: 2009Q2

REPORT INFORMATION
  Report Type: 
  Country: None (occurrence: None)
  Receive Date: 20090424
  Receipt Date: 20090414
  Transmission Date: 20091009
  Serious: Yes (Other)
  Sender: FDA-Public Use
  Company Number: GB-RANBAXY-2009RR-22936

PATIENT
  Age: 61 Year
  Sex: Female

DRUGS (5)
  1. GABAPENTIN [Suspect]
     Indication: TRIGEMINAL NEURALGIA
     Dosage: 300 MG, TID
     Route: 048
     Dates: start: 20050628
  2. LYRICA [Suspect]
     Indication: NEURALGIA
     Dosage: 75 MG, BID
     Route: 048
     Dates: start: 20060911
  3. LYRICA [Suspect]
     Indication: TRIGEMINAL NEURALGIA
  4. AMLODIPINE BESYLATE [Concomitant]
     Dosage: 5 MG, QD
     Route: 048
     Dates: start: 20050329
  5. PERINDOPRIL [Concomitant]
     Indication: HYPOTENSION
     Dosage: 4 MG, QD
     Route: 048
     Dates: start: 20050322

REACTIONS (3)
  - MUSCLE TWITCHING [None]
  - TRIGEMINAL NEURALGIA [None]
  - TRISMUS [None]
